FAERS Safety Report 9001943 (Version 2)
Quarter: 2013Q2

REPORT INFORMATION
  Report Type: Spontaneous
  Country: US (occurrence: US)
  Receive Date: 20130108
  Receipt Date: 20130502
  Transmission Date: 20140414
  Serious: Yes (Other)
  Sender: FDA-Public Use
  Company Number: US-MERCK-1301USA001840

PATIENT
  Age: 60 Year
  Sex: Male

DRUGS (1)
  1. SYLATRON [Suspect]
     Dosage: UNK
     Dates: start: 201210

REACTIONS (1)
  - Convulsion [Not Recovered/Not Resolved]
